FAERS Safety Report 5248338-2 (Version None)
Quarter: 2007Q1

REPORT INFORMATION
  Report Type: 
  Country: None (occurrence: None)
  Receive Date: 20070227
  Receipt Date: 20070219
  Transmission Date: 20070707
  Serious: Yes (Hospitalization)
  Sender: FDA-Public Use
  Company Number: CA-BOEHRINGER INGELHEIM GMBH, GERMANY-2006-CN-00764CN

PATIENT
  Age: 74 Year
  Sex: Female

DRUGS (8)
  1. MICARDIS [Suspect]
     Indication: HYPERTENSION
     Dates: start: 20051201
  2. COUMADIN [Concomitant]
  3. NORVASC [Concomitant]
  4. ARICEPT [Concomitant]
  5. RISPERDAL [Concomitant]
  6. HALDOL [Concomitant]
  7. PREDNISONE [Concomitant]
  8. POTASSIUM ACETATE [Concomitant]

REACTIONS (3)
  - CELLULITIS [None]
  - DEEP VEIN THROMBOSIS [None]
  - OEDEMA PERIPHERAL [None]
